FAERS Safety Report 8816561 (Version 1)
Quarter: 2012Q4

REPORT INFORMATION
  Report Type: Spontaneous
  Country: US (occurrence: None)
  Receive Date: 20121001
  Receipt Date: 20121001
  Transmission Date: 20130627
  Serious: Yes (Life-Threatening)
  Sender: FDA-Public Use
  Company Number: None

PATIENT
  Age: 64 Year
  Sex: Female
  Weight: 79.38 kg

DRUGS (1)
  1. MINOCYCLINE [Suspect]
     Indication: INFECTED MOLE
     Route: 048
     Dates: start: 20120827, end: 20120829

REACTIONS (1)
  - Swollen tongue [None]
